FAERS Safety Report 5853890-X (Version None)
Quarter: 2008Q3

REPORT INFORMATION
  Report Type: 
  Country: None (occurrence: None)
  Receive Date: 20080822
  Receipt Date: 20080818
  Transmission Date: 20090109
  Serious: Yes (Disabling)
  Sender: FDA-Public Use
  Company Number: A0736460A

PATIENT
  Age: 66 Year
  Sex: Female
  Weight: 45.5 kg

DRUGS (4)
  1. IMITREX [Suspect]
     Indication: MIGRAINE
     Dosage: 50MG AS REQUIRED
     Route: 048
     Dates: start: 20080703, end: 20080703
  2. COLACE [Concomitant]
  3. CALCIUM [Concomitant]
  4. OGEN [Concomitant]

REACTIONS (13)
  - COLD SWEAT [None]
  - DIZZINESS [None]
  - DRUG INEFFECTIVE [None]
  - FEELING ABNORMAL [None]
  - GAIT DISTURBANCE [None]
  - PALPITATIONS [None]
  - PHARMACEUTICAL PRODUCT COMPLAINT [None]
  - POLLAKIURIA [None]
  - POLYURIA [None]
  - SCOTOMA [None]
  - SLEEP DISORDER [None]
  - TREMOR [None]
  - VISUAL IMPAIRMENT [None]
